FAERS Safety Report 18210452 (Version 3)
Quarter: 2020Q4

REPORT INFORMATION
  Report Type: Spontaneous
  Country: US (occurrence: US)
  Receive Date: 20200829
  Receipt Date: 20201208
  Transmission Date: 20210113
  Serious: No
  Sender: FDA-Public Use
  Company Number: US-ASTRAZENECA-2020SF03303

PATIENT
  Sex: Female

DRUGS (1)
  1. PULMICORT FLEXHALER [Suspect]
     Active Substance: BUDESONIDE
     Indication: COVID-19
     Dosage: 90 UG TWO PUFFS TWICE DAILY (TWO PUFFS IN THE MORNING, TWO PUFFS IN THE EVENING)
     Route: 055
     Dates: start: 20200810

REACTIONS (3)
  - Malaise [Unknown]
  - Device delivery system issue [Unknown]
  - Off label use [Unknown]
